FAERS Safety Report 7568273-4 (Version None)
Quarter: 2011Q2

REPORT INFORMATION
  Report Type: 
  Country: None (occurrence: None)
  Receive Date: 20110617
  Receipt Date: 20110606
  Transmission Date: 20111010
  Serious: Yes (Death)
  Sender: FDA-Public Use
  Company Number: OMPQ-PR-1105S-0391

PATIENT
  Age: 58 Year
  Sex: Male

DRUGS (2)
  1. OMNIPAQUE 70 [Suspect]
     Indication: OESOPHAGEAL PERFORATION
     Dosage: UNSPECIFIED SINGLE DOSE, ORAL
     Route: 048
     Dates: start: 20110315, end: 20110315
  2. OMNIPAQUE 70 [Suspect]
     Indication: EXTRAVASATION
     Dosage: UNSPECIFIED SINGLE DOSE, ORAL
     Route: 048
     Dates: start: 20110315, end: 20110315

REACTIONS (5)
  - SHOCK [None]
  - MULTI-ORGAN FAILURE [None]
  - HYPOTENSION [None]
  - UNRESPONSIVE TO STIMULI [None]
  - ASPIRATION [None]
